FAERS Safety Report 9713696 (Version 1)
Quarter: 2013Q4

REPORT INFORMATION
  Report Type: Spontaneous
  Country: JP (occurrence: JP)
  Receive Date: 20131126
  Receipt Date: 20131126
  Transmission Date: 20140711
  Serious: Yes (Other)
  Sender: FDA-Public Use
  Company Number: JP-BRISTOL-MYERS SQUIBB COMPANY-19842012

PATIENT
  Sex: Female

DRUGS (2)
  1. ABILIFY [Suspect]
     Dosage: 11NOV13-UNK 30MG/DY
     Route: 048
  2. RISPERDAL [Concomitant]
     Dates: end: 20131110

REACTIONS (2)
  - Hallucination [Unknown]
  - Pain [Unknown]
